FAERS Safety Report 7552768-3 (Version None)
Quarter: 2011Q2

REPORT INFORMATION
  Report Type: 
  Country: None (occurrence: None)
  Receive Date: 20110616
  Receipt Date: 20110613
  Transmission Date: 20111010
  Serious: Yes (Other)
  Sender: FDA-Public Use
  Company Number: US-PFIZER INC-2011128879

PATIENT
  Sex: Female
  Weight: 72.562 kg

DRUGS (3)
  1. LEVOTHYROXINE [Concomitant]
     Dosage: 100 UG, UNK
     Route: 048
  2. NITROFURANTOIN [Concomitant]
     Indication: HYPOTHYROIDISM
     Dosage: 100 MG, UNK
     Route: 048
  3. GENOTROPIN [Suspect]
     Dosage: 0.2 MG, 7 DAYS A WEEK, UNK
     Route: 058

REACTIONS (2)
  - BLOOD GLUCOSE INCREASED [None]
  - OEDEMA PERIPHERAL [None]
